FAERS Safety Report 11820865 (Version 7)
Quarter: 2017Q4

REPORT INFORMATION
  Report Type: Spontaneous
  Country: US (occurrence: US)
  Receive Date: 20151210
  Receipt Date: 20171121
  Transmission Date: 20180320
  Serious: No
  Sender: FDA-Public Use
  Company Number: US-JNJFOC-20150717304

PATIENT
  Age: 75 Year
  Sex: Male

DRUGS (17)
  1. IMBRUVICA [Suspect]
     Active Substance: IBRUTINIB
     Indication: CHRONIC LYMPHOCYTIC LEUKAEMIA
     Dosage: 280 MG BY MOUTH ONE TIME EVERY OTHER DAY ALTERNATING WITH 420 MG QD
     Route: 048
     Dates: start: 20140910
  2. TOPROL XL [Concomitant]
     Active Substance: METOPROLOL SUCCINATE
  3. IMBRUVICA [Suspect]
     Active Substance: IBRUTINIB
     Indication: CHRONIC LYMPHOCYTIC LEUKAEMIA
     Dosage: 280 MG BY MOUTH ONE TIME EVERY OTHER DAY ALTERNATING WITH 420 MG QD
     Route: 048
     Dates: start: 20140910
  4. PLAVIX [Concomitant]
     Active Substance: CLOPIDOGREL BISULFATE
  5. ASPIRIN. [Concomitant]
     Active Substance: ASPIRIN
  6. NITROGLYCERIN. [Concomitant]
     Active Substance: NITROGLYCERIN
  7. INSULIN [Concomitant]
     Active Substance: INSULIN NOS
  8. GLIMEPIRIDE. [Concomitant]
     Active Substance: GLIMEPIRIDE
  9. IMODIUM A-D [Concomitant]
     Active Substance: LOPERAMIDE HYDROCHLORIDE
  10. JANUVIA [Concomitant]
     Active Substance: SITAGLIPTIN PHOSPHATE
  11. NIFEDIPINE. [Concomitant]
     Active Substance: NIFEDIPINE
  12. ZOCOR [Concomitant]
     Active Substance: SIMVASTATIN
  13. IMBRUVICA [Suspect]
     Active Substance: IBRUTINIB
     Indication: CHRONIC LYMPHOCYTIC LEUKAEMIA
     Route: 048
     Dates: start: 20140906
  14. IMBRUVICA [Suspect]
     Active Substance: IBRUTINIB
     Indication: CHRONIC LYMPHOCYTIC LEUKAEMIA
     Dosage: 280 MG BY MOUTH ONE TIME EVERY OTHER DAY ALTERNATING WITH 420 MG QD
     Route: 048
     Dates: start: 20171103
  15. METFORMIN [Concomitant]
     Active Substance: METFORMIN HYDROCHLORIDE
  16. LANTUS [Concomitant]
     Active Substance: INSULIN GLARGINE
  17. CAPTOPRIL. [Concomitant]
     Active Substance: CAPTOPRIL

REACTIONS (7)
  - Inappropriate schedule of drug administration [Not Recovered/Not Resolved]
  - Off label use [Not Recovered/Not Resolved]
  - Incorrect dose administered [Not Recovered/Not Resolved]
  - Diarrhoea [Unknown]
  - Muscle spasms [Unknown]
  - Pain in extremity [Recovered/Resolved]
  - Musculoskeletal pain [Recovered/Resolved]

NARRATIVE: CASE EVENT DATE: 20140910
